FAERS Safety Report 8507903-7 (Version None)
Quarter: 2012Q3

REPORT INFORMATION
  Report Type: 
  Country: None (occurrence: None)
  Receive Date: 20120709
  Receipt Date: 20120709
  Transmission Date: 20120928
  Serious: Yes (Other)
  Sender: FDA-Public Use
  Company Number: None

PATIENT
  Age: 55 Year
  Weight: 68.0396 kg

DRUGS (2)
  1. CLINDAMYCIN [Suspect]
     Indication: ENDODONTIC PROCEDURE
     Dosage: PO
     Route: 048
     Dates: start: 20120601, end: 20120604
  2. CLINDAMYCIN [Suspect]
     Indication: PROPHYLAXIS
     Dosage: PO
     Route: 048
     Dates: start: 20120601, end: 20120604

REACTIONS (5)
  - DYSPEPSIA [None]
  - CLOSTRIDIUM DIFFICILE COLITIS [None]
  - DRUG INEFFECTIVE [None]
  - ORAL CANDIDIASIS [None]
  - TINNITUS [None]
